FAERS Safety Report 4937569-4 (Version None)
Quarter: 2006Q1

REPORT INFORMATION
  Report Type: 
  Country: None (occurrence: None)
  Receive Date: 20060309
  Receipt Date: 20051026
  Transmission Date: 20060701
  Serious: Yes (Death)
  Sender: FDA-Public Use
  Company Number: US-MERCK-0510USA09175

PATIENT
  Age: 53 Year
  Sex: Male
  Weight: 97 kg

DRUGS (2)
  1. VIOXX [Suspect]
     Indication: RHEUMATOID ARTHRITIS
     Route: 048
     Dates: start: 20030401, end: 20031115
  2. VIOXX [Suspect]
     Route: 065
     Dates: start: 20020701

REACTIONS (5)
  - CARDIAC ARREST [None]
  - CONVULSION [None]
  - MYOCARDIAL INFARCTION [None]
  - SUDDEN DEATH [None]
  - VENTRICULAR FIBRILLATION [None]
